FAERS Safety Report 15598887 (Version 1)
Quarter: 2018Q4

REPORT INFORMATION
  Report Type: Spontaneous
  Country: US (occurrence: US)
  Receive Date: 20181108
  Receipt Date: 20181108
  Transmission Date: 20190205
  Serious: Yes (Life-Threatening, Hospitalization, Other)
  Sender: FDA-Public Use
  Company Number: None

PATIENT
  Age: 20 Year
  Sex: Male
  Weight: 99 kg

DRUGS (6)
  1. APPLE CIDER VINEGAR [Concomitant]
     Active Substance: APPLE CIDER VINEGAR
  2. MSM [Concomitant]
     Active Substance: DIMETHYL SULFONE
  3. CIPROFLOXACIN. [Suspect]
     Active Substance: CIPROFLOXACIN
     Indication: COLITIS
     Dosage: ?          QUANTITY:28 TABLET(S);?
     Route: 048
     Dates: start: 20181005, end: 20181008
  4. MAGNESIUM [Concomitant]
     Active Substance: MAGNESIUM
  5. CBD [Concomitant]
     Active Substance: CANNABIDIOL
  6. CALCIUM [Concomitant]
     Active Substance: CALCIUM

REACTIONS (9)
  - Panic attack [None]
  - Bone disorder [None]
  - Anxiety [None]
  - Tendonitis [None]
  - Insomnia [None]
  - Feeling abnormal [None]
  - Muscle atrophy [None]
  - Product complaint [None]
  - Memory impairment [None]

NARRATIVE: CASE EVENT DATE: 20181008
